FAERS Safety Report 8543137-8 (Version None)
Quarter: 2012Q3

REPORT INFORMATION
  Report Type: 
  Country: None (occurrence: None)
  Receive Date: 20120727
  Receipt Date: 20120416
  Transmission Date: 20120928
  Serious: No
  Sender: FDA-Public Use
  Company Number: US-MYLANLABS-2012S1005982

PATIENT
  Age: 73 Year
  Sex: Female

DRUGS (1)
  1. LEVOTHYROXINE SODIUM [Suspect]
     Indication: HYPOTHYROIDISM
     Route: 048

REACTIONS (4)
  - ORAL DISCOMFORT [None]
  - DYSGEUSIA [None]
  - DIARRHOEA [None]
  - THROAT IRRITATION [None]
